FAERS Safety Report 23097138 (Version 1)
Quarter: 2023Q4

REPORT INFORMATION
  Report Type: Spontaneous
  Country: US (occurrence: US)
  Receive Date: 20231023
  Receipt Date: 20231023
  Transmission Date: 20240109
  Serious: No
  Sender: FDA-Public Use
  Company Number: US-002147023-NVSC2023US226486

PATIENT

DRUGS (1)
  1. LEQVIO [Suspect]
     Active Substance: INCLISIRAN SODIUM
     Indication: Product used for unknown indication
     Dosage: (284 MG, OTHER)/(1.5 ML) TWICE A YEAR (RECENT DOSE RECEIVED ON 19 OCT 2023)
     Route: 058
     Dates: start: 20231019

REACTIONS (2)
  - Back pain [Unknown]
  - Diarrhoea [Unknown]
